FAERS Safety Report 4925429-4 (Version None)
Quarter: 2006Q1

REPORT INFORMATION
  Report Type: 
  Country: None (occurrence: None)
  Receive Date: 20060228
  Receipt Date: 20050217
  Transmission Date: 20060701
  Serious: No
  Sender: FDA-Public Use
  Company Number: US-GLAXOSMITHKLINE-A0546055A

PATIENT
  Age: 13 Year
  Sex: Female

DRUGS (2)
  1. LAMICTAL [Suspect]
     Indication: EPILEPSY
     Dosage: 50MG PER DAY
     Route: 048
     Dates: start: 20050127
  2. NO CONCURRENT MEDICATION [Concomitant]

REACTIONS (4)
  - PRURITUS [None]
  - RASH [None]
  - RASH PUSTULAR [None]
  - SKIN BURNING SENSATION [None]
